FAERS Safety Report 22259458 (Version 3)
Quarter: 2023Q2

REPORT INFORMATION
  Report Type: Spontaneous
  Country: US (occurrence: US)
  Receive Date: 20230427
  Receipt Date: 20230626
  Transmission Date: 20230721
  Serious: No
  Sender: FDA-Public Use
  Company Number: US-GSKCCFUS-Case-01680300_AE-94780

PATIENT
  Age: 9 Year
  Sex: Female

DRUGS (1)
  1. ADVAIR HFA [Suspect]
     Active Substance: FLUTICASONE PROPIONATE\SALMETEROL XINAFOATE
     Indication: Product used for unknown indication
     Dosage: 2 PUFF(S), BID (230MCG/21MCG)
     Dates: start: 202304

REACTIONS (3)
  - Product use issue [Unknown]
  - Circumstance or information capable of leading to medication error [Unknown]
  - Product complaint [Unknown]

NARRATIVE: CASE EVENT DATE: 20230401
